FAERS Safety Report 15832118 (Version 1)
Quarter: 2019Q1

REPORT INFORMATION
  Report Type: Spontaneous
  Country: US (occurrence: US)
  Receive Date: 20190114
  Receipt Date: 20190114
  Transmission Date: 20190417
  Serious: Yes (Hospitalization)
  Sender: FDA-Public Use
  Company Number: None

PATIENT
  Age: 54 Year
  Sex: Male

DRUGS (11)
  1. TACROLIMUS 1MG CAP [Suspect]
     Active Substance: TACROLIMUS
     Indication: ORGAN TRANSPLANT
     Route: 048
     Dates: start: 201706, end: 20190103
  2. NOVOLOG [Concomitant]
     Active Substance: INSULIN ASPART
  3. CHLORHEX GLU SOL [Concomitant]
  4. MYCOPHENOLATE 500MG TAB [Suspect]
     Active Substance: MYCOPHENOLIC ACID
     Indication: ORGAN TRANSPLANT
     Route: 048
     Dates: start: 201706, end: 20190103
  5. ATORVASTATIN [Concomitant]
     Active Substance: ATORVASTATIN
  6. LANTUS [Concomitant]
     Active Substance: INSULIN GLARGINE
  7. AMLODIPINE [Concomitant]
     Active Substance: AMLODIPINE BESYLATE
  8. FAMOTIDINE. [Concomitant]
     Active Substance: FAMOTIDINE
  9. BRIMONIDINE [Concomitant]
     Active Substance: BRIMONIDINE TARTRATE
  10. SILDENAFIL. [Concomitant]
     Active Substance: SILDENAFIL
  11. CLOBETASOL CREAM [Concomitant]
     Active Substance: CLOBETASOL

REACTIONS (1)
  - Hospitalisation [None]

NARRATIVE: CASE EVENT DATE: 20190103
